FAERS Safety Report 22957986 (Version 2)
Quarter: 2023Q4

REPORT INFORMATION
  Report Type: Spontaneous
  Country: US (occurrence: US)
  Receive Date: 20230919
  Receipt Date: 20231009
  Transmission Date: 20240110
  Serious: Yes (Other)
  Sender: FDA-Public Use
  Company Number: US-BIOVITRUM-2023-US-014898

PATIENT
  Age: 30 Year
  Sex: Female

DRUGS (1)
  1. AVATROMBOPAG [Suspect]
     Active Substance: AVATROMBOPAG
     Indication: Immune thrombocytopenia
     Dosage: DAILY
     Route: 048

REACTIONS (5)
  - Pulmonary embolism [Unknown]
  - Abdominal pain [Unknown]
  - Nausea [Unknown]
  - Vomiting [Unknown]
  - Diarrhoea [Unknown]
